FAERS Safety Report 8201416-8 (Version None)
Quarter: 2012Q1

REPORT INFORMATION
  Report Type: 
  Country: None (occurrence: None)
  Receive Date: 20120312
  Receipt Date: 20120305
  Transmission Date: 20120608
  Serious: Yes (Hospitalization, Other)
  Sender: FDA-Public Use
  Company Number: US-TEVA-326403USA

PATIENT
  Age: 60 Year
  Sex: Female

DRUGS (9)
  1. CIPROFLOXACIN [Suspect]
     Indication: ABSCESS INTESTINAL
     Route: 042
  2. MIDAZOLAM [Concomitant]
     Indication: ABSCESS DRAINAGE
     Route: 065
  3. FENTANYL [Concomitant]
     Indication: ABSCESS DRAINAGE
     Route: 065
  4. CEFOXITIN [Suspect]
     Route: 042
  5. METOCLOPRAMIDE [Concomitant]
     Indication: ABSCESS INTESTINAL
     Route: 051
  6. MORPHINE [Concomitant]
     Indication: ABSCESS INTESTINAL
     Route: 051
  7. METRONIDAZOLE [Concomitant]
     Indication: ABSCESS INTESTINAL
     Route: 051
  8. CEFOXITIN [Suspect]
     Indication: ABSCESS INTESTINAL
     Dosage: FOLLOWED BY 1G EVERY 12H (IV)
     Route: 051
  9. CINACALCET HYDROCHLORIDE [Concomitant]
     Indication: ABSCESS INTESTINAL
     Dosage: 60MG DAILY
     Route: 048

REACTIONS (7)
  - NEUROTOXICITY [None]
  - SCREAMING [None]
  - TACHYCARDIA [None]
  - MYOCLONUS [None]
  - AGITATION [None]
  - CATATONIA [None]
  - TREMOR [None]
